FAERS Safety Report 21858160 (Version 2)
Quarter: 2023Q2

REPORT INFORMATION
  Report Type: Report from Study
  Country: US (occurrence: US)
  Receive Date: 20230113
  Receipt Date: 20230427
  Transmission Date: 20230721
  Serious: Yes (Other)
  Sender: FDA-Public Use
  Company Number: US-ABBVIE-4230898

PATIENT
  Age: 46 Year
  Sex: Female

DRUGS (1)
  1. HUMIRA [Suspect]
     Active Substance: ADALIMUMAB
     Indication: Rheumatoid arthritis
     Route: 058

REACTIONS (5)
  - Pain in extremity [Not Recovered/Not Resolved]
  - Rheumatoid arthritis [Recovering/Resolving]
  - Sciatic nerve neuropathy [Not Recovered/Not Resolved]
  - Oedema peripheral [Unknown]
  - Back pain [Not Recovered/Not Resolved]

NARRATIVE: CASE EVENT DATE: 20221201
